FAERS Safety Report 6941913-6 (Version None)
Quarter: 2010Q3

REPORT INFORMATION
  Report Type: 
  Country: None (occurrence: None)
  Receive Date: 20100826
  Receipt Date: 20100820
  Transmission Date: 20110219
  Serious: Yes (Other)
  Sender: FDA-Public Use
  Company Number: GB-WYE-G06571810

PATIENT
  Age: 68 Year
  Sex: Male

DRUGS (5)
  1. VENLAFAXINE HYDROCHLORIDE [Suspect]
     Indication: ANTIDEPRESSANT THERAPY
     Dosage: UNKNOWN
     Dates: start: 20100101, end: 20100101
  2. DEXAMETHASONE [Concomitant]
     Indication: DYSPNOEA
     Route: 048
     Dates: start: 20091214
  3. RANITIDINE [Concomitant]
     Indication: PROPHYLAXIS
     Route: 048
     Dates: start: 20091228
  4. TARCEVA [Suspect]
     Indication: LUNG NEOPLASM MALIGNANT
     Route: 048
     Dates: start: 20091214
  5. TARCEVA [Suspect]
     Route: 048
     Dates: start: 20100101

REACTIONS (2)
  - BURNING SENSATION [None]
  - RASH PRURITIC [None]
